FAERS Safety Report 17133842 (Version 1)
Quarter: 2019Q4

REPORT INFORMATION
  Report Type: Spontaneous
  Country: US (occurrence: US)
  Receive Date: 20191210
  Receipt Date: 20191210
  Transmission Date: 20200122
  Serious: No
  Sender: FDA-Public Use
  Company Number: US-UCBSA-2016039122

PATIENT
  Sex: Female
  Weight: 54 kg

DRUGS (6)
  1. VIMPAT [Suspect]
     Active Substance: LACOSAMIDE
     Indication: AMNESIA
     Dosage: 200 MG, 2X/DAY (BID)
  2. ESTRADIOL. [Concomitant]
     Active Substance: ESTRADIOL
     Indication: HYPERTENSION
     Dosage: UNK, ONCE DAILY (QD)
  3. VIMPAT [Suspect]
     Active Substance: LACOSAMIDE
     Dosage: 150 MG, 2X/DAY (BID)
     Dates: start: 2016, end: 2016
  4. VIMPAT [Suspect]
     Active Substance: LACOSAMIDE
     Indication: OFF LABEL USE
     Dosage: 150MG AM AND 200MG PM
     Dates: start: 20160825, end: 2016
  5. VIMPAT [Suspect]
     Active Substance: LACOSAMIDE
     Dosage: 100MG AM AND 150MG PM
     Dates: start: 2016, end: 2016
  6. VITAMINS [Concomitant]
     Active Substance: VITAMINS
     Indication: PRODUCT USED FOR UNKNOWN INDICATION

REACTIONS (4)
  - Tremor [Not Recovered/Not Resolved]
  - Off label use [Unknown]
  - Drug ineffective for unapproved indication [Unknown]
  - Dizziness [Not Recovered/Not Resolved]

NARRATIVE: CASE EVENT DATE: 2016
